FAERS Safety Report 8264170 (Version 6)
Quarter: 2013Q2

REPORT INFORMATION
  Report Type: Spontaneous
  Country: US (occurrence: US)
  Receive Date: 20111128
  Receipt Date: 20130624
  Transmission Date: 20140414
  Serious: Yes (Hospitalization, Other)
  Sender: FDA-Public Use
  Company Number: US-CELGENEUS-163-21880-11031773

PATIENT
  Age: 50 Year
  Sex: Female
  Weight: 78.09 kg

DRUGS (42)
  1. REVLIMID [Suspect]
     Indication: PLASMA CELL MYELOMA
     Dosage: 10 MILLIGRAM
     Route: 048
     Dates: start: 20100830, end: 20110726
  2. REVLIMID [Suspect]
     Dosage: 15 MILLIGRAM
     Route: 048
     Dates: start: 20110726
  3. REVLIMID [Suspect]
     Dosage: 10 MILLIGRAM
     Route: 048
     Dates: start: 20110928
  4. REVLIMID [Suspect]
     Dosage: 25 MILLIGRAM
     Route: 048
     Dates: start: 201111, end: 2012
  5. POTASSIUM CHLORIDE [Concomitant]
     Indication: PRODUCT USED FOR UNKNOWN INDICATION
     Route: 065
  6. NEURONTIN [Concomitant]
     Indication: PRODUCT USED FOR UNKNOWN INDICATION
     Dosage: 300 MILLIGRAM
     Route: 048
  7. DEXAMETHASONE [Concomitant]
     Indication: INFLAMMATION
     Dosage: 40 MILLIGRAM
     Route: 048
     Dates: start: 201009
  8. ASA [Concomitant]
     Indication: THROMBOSIS
     Dosage: 81 MILLIGRAM
     Route: 048
  9. ASA [Concomitant]
     Dosage: 325 MILLIGRAM
     Route: 065
  10. ALBUTEROL [Concomitant]
     Indication: COUGH
     Dosage: 72 MICROGRAM
     Route: 055
  11. ALBUTEROL [Concomitant]
     Indication: RESPIRATORY TRACT CONGESTION
  12. ALPRAZOLAM [Concomitant]
     Indication: NERVOUSNESS
     Dosage: 1 MICROGRAM
     Route: 048
  13. CALCIUM/VITAMIN D3 [Concomitant]
     Indication: PRODUCT USED FOR UNKNOWN INDICATION
     Dosage: 600MG/400 UNITS, 2 TABLETS
     Route: 048
  14. CITALOPRAM HYDROBROMIDE [Concomitant]
     Indication: NERVOUSNESS
     Dosage: 40 MILLIGRAM
     Route: 048
  15. DOCUSATE SODIUM [Concomitant]
     Indication: FAECES HARD
     Dosage: 200 MILLIGRAM
     Route: 048
  16. FENTANYL [Concomitant]
     Indication: PAIN
     Dosage: 25 MICROGRAM
     Route: 062
  17. MULTIVITAMINS [Concomitant]
     Indication: PRODUCT USED FOR UNKNOWN INDICATION
     Dosage: 1 TABLET
     Route: 048
  18. OMEPRAZOLE [Concomitant]
     Indication: PRODUCT USED FOR UNKNOWN INDICATION
     Dosage: 40 MILLIGRAM
     Route: 048
  19. PERCOCET-OXYCODONE [Concomitant]
     Indication: PAIN
     Dosage: 1950 MILLIGRAM
     Route: 048
  20. POLYETHYLENE GLYCOL [Concomitant]
     Indication: CONSTIPATION
     Dosage: 17 GRAM
     Route: 048
  21. PSEUDO 60/TRIPROLIDINE [Concomitant]
     Indication: NASAL CONGESTION
     Dosage: 5 MILLIGRAM
     Route: 048
  22. SODIUM CHLORIDE [Concomitant]
     Indication: PRODUCT USED FOR UNKNOWN INDICATION
     Dosage: 8 DOSAGE FORMS
     Route: 045
  23. VALACYCLOVIR HYDROCHLORIDE [Concomitant]
     Indication: INFECTION
     Dosage: 1000 MILLIGRAM
     Route: 048
  24. VITAMIN D [Concomitant]
     Indication: PRODUCT USED FOR UNKNOWN INDICATION
     Route: 065
  25. BUSPIRONE HCL [Concomitant]
     Indication: NERVOUSNESS
     Dosage: 3 TABLET
     Route: 048
  26. LORATADINE [Concomitant]
     Indication: MULTIPLE ALLERGIES
     Dosage: 10 MILLIGRAM
     Route: 048
  27. METOPROLOL TARTRATE [Concomitant]
     Indication: BLOOD PRESSURE
     Dosage: 50 MILLIGRAM
     Route: 048
  28. BACITRACIN [Concomitant]
     Indication: INFECTION
     Route: 061
  29. MIRTAZAPINE [Concomitant]
     Indication: NERVOUSNESS
     Dosage: 7.5 MILLIGRAM
     Route: 048
  30. DOXYCYCLINE HYCLATE [Concomitant]
     Indication: FAECES HARD
     Dosage: 100 MILLIGRAM
     Route: 048
  31. FLUCONAZOLE [Concomitant]
     Indication: FUNGAL INFECTION
     Dosage: 200 MILLIGRAM
     Route: 048
  32. FLUCONAZOLE [Concomitant]
     Dosage: 100 MILLIGRAM
     Route: 048
  33. PAMIDRONATE [Concomitant]
     Indication: PRODUCT USED FOR UNKNOWN INDICATION
     Route: 065
  34. VELCADE [Concomitant]
     Indication: PRODUCT USED FOR UNKNOWN INDICATION
     Route: 065
     Dates: end: 201201
  35. NYSTATIN [Concomitant]
     Indication: PRODUCT USED FOR UNKNOWN INDICATION
  36. ZOFRAN [Concomitant]
     Indication: PRODUCT USED FOR UNKNOWN INDICATION
     Route: 065
  37. PROMETHAZINE [Concomitant]
     Indication: PRODUCT USED FOR UNKNOWN INDICATION
     Route: 065
  38. IBUPROFEN [Concomitant]
     Indication: PRODUCT USED FOR UNKNOWN INDICATION
     Route: 065
  39. CLONIDINE [Concomitant]
     Indication: PRODUCT USED FOR UNKNOWN INDICATION
     Route: 065
  40. ACYCLOVIR [Concomitant]
     Indication: PRODUCT USED FOR UNKNOWN INDICATION
     Route: 065
  41. Z PAK [Concomitant]
     Indication: PRODUCT USED FOR UNKNOWN INDICATION
     Route: 065
  42. BLOOD PRESSURE MEDICATION [Concomitant]
     Indication: HYPERTENSION
     Route: 065

REACTIONS (7)
  - Ureteric cancer [Unknown]
  - Organising pneumonia [Not Recovered/Not Resolved]
  - Upper respiratory tract infection [Recovered/Resolved with Sequelae]
  - Monoclonal immunoglobulin present [Recovered/Resolved with Sequelae]
  - Malaise [Recovered/Resolved with Sequelae]
  - Light chain analysis increased [Unknown]
  - Protein urine present [Unknown]
